FAERS Safety Report 5925348-0 (Version None)
Quarter: 2008Q4

REPORT INFORMATION
  Report Type: 
  Country: None (occurrence: None)
  Receive Date: 20081021
  Receipt Date: 20081010
  Transmission Date: 20090506
  Serious: Yes (Hospitalization)
  Sender: FDA-Public Use
  Company Number: NO-JNJCH-2008051867

PATIENT
  Sex: Female

DRUGS (1)
  1. COOL MINT LISTERINE [Suspect]
     Indication: DRUG USE FOR UNKNOWN INDICATION
     Dosage: TEXT:UNSPECIFIED
     Route: 048
     Dates: start: 20080401, end: 20080401

REACTIONS (13)
  - ANOREXIA [None]
  - APTYALISM [None]
  - BLISTER [None]
  - CONSTIPATION [None]
  - DIPLOPIA [None]
  - HEADACHE [None]
  - LACRIMAL DISORDER [None]
  - LACRIMATION DECREASED [None]
  - ODYNOPHAGIA [None]
  - OROPHARYNGEAL BLISTERING [None]
  - SALIVA ALTERED [None]
  - TONGUE BLISTERING [None]
  - WEIGHT DECREASED [None]
